FAERS Safety Report 18325236 (Version 8)
Quarter: 2022Q1

REPORT INFORMATION
  Report Type: Spontaneous
  Country: PL (occurrence: PL)
  Receive Date: 20200928
  Receipt Date: 20220107
  Transmission Date: 20220423
  Serious: Yes (Hospitalization, Other)
  Sender: FDA-Public Use
  Company Number: PL-SUN PHARMACEUTICAL INDUSTRIES LTD-2020RR-261361

PATIENT
  Age: 79 Year
  Sex: Female

DRUGS (13)
  1. BISOPROLOL [Suspect]
     Active Substance: BISOPROLOL
     Indication: Product used for unknown indication
     Dosage: 5 MILLIGRAM, TWO TIMES A DAY (10 MG ONCE A DAY)
     Route: 065
  2. RAMIPRIL [Suspect]
     Active Substance: RAMIPRIL
     Indication: Product used for unknown indication
     Dosage: 5 MILLIGRAM, ONCE A DAY (1 TABLET IN THE MORNING)
     Route: 048
  3. ROSUVASTATIN [Suspect]
     Active Substance: ROSUVASTATIN
     Indication: Product used for unknown indication
     Dosage: 20 MILLIGRAM, ONCE A DAY (20 MG 1 TABLET IN THE EVENING)
     Route: 048
  4. HYDROXYZINE [Suspect]
     Active Substance: HYDROXYZINE HYDROCHLORIDE
     Indication: Product used for unknown indication
     Dosage: 25 MILLIGRAM, ONCE A DAY,1 DF IN THE EVENING
     Route: 065
  5. POTASSIUM [Suspect]
     Active Substance: POTASSIUM
     Indication: Product used for unknown indication
     Dosage: 1 DOSAGE FORM, TWO TIMES A DAY (1 TABLET (10 MEQ) 2 X DAY)
     Route: 048
  6. POTASSIUM [Suspect]
     Active Substance: POTASSIUM
     Dosage: 20 MILLIEQUIVALENT, ONCE A DAY
     Route: 065
  7. RAMIPRIL [Suspect]
     Active Substance: RAMIPRIL
     Indication: Product used for unknown indication
     Dosage: 5 MILLIGRAM, ONCE A DAY (1 TABLET IN THE MORNING)
     Route: 048
  8. TORSEMIDE [Suspect]
     Active Substance: TORSEMIDE
     Indication: Product used for unknown indication
     Dosage: 10 MILLIGRAM, ONCE A DAY (1 DF IN THE MORNING)
     Route: 048
  9. TORSEMIDE [Suspect]
     Active Substance: TORSEMIDE
     Dosage: 1.2 DOSAGE FORM, ONCE A DAY
     Route: 065
  10. WARFARIN [Suspect]
     Active Substance: WARFARIN
     Indication: Product used for unknown indication
     Dosage: 5 MILLIGRAM, ONCE A DAY
     Route: 065
  11. WARFARIN [Suspect]
     Active Substance: WARFARIN
     Dosage: 2.5 DOSAGE FORM (ON 1ST DAY)
     Route: 048
  12. WARFARIN [Suspect]
     Active Substance: WARFARIN
     Dosage: 2.5 DOSAGE FORM (ON 2ND DAY)
     Route: 048
  13. WARFARIN [Suspect]
     Active Substance: WARFARIN
     Dosage: 3 DOSAGE FORM, ONCE A DAY ON 3 DAY
     Route: 048

REACTIONS (7)
  - Atrial fibrillation [Recovering/Resolving]
  - Cardiac failure [Unknown]
  - Drug ineffective [Recovering/Resolving]
  - Cardiac failure chronic [Recovering/Resolving]
  - Disease progression [Unknown]
  - Exercise tolerance decreased [Recovering/Resolving]
  - Dyspnoea exertional [Recovering/Resolving]
